FAERS Safety Report 9324255 (Version 1)
Quarter: 2013Q2

REPORT INFORMATION
  Report Type: Spontaneous
  Country: GB (occurrence: GB)
  Receive Date: 20130603
  Receipt Date: 20130603
  Transmission Date: 20140414
  Serious: Yes (Hospitalization, Disabling, Other)
  Sender: FDA-Public Use
  Company Number: PHHY2013GB053402

PATIENT
  Age: 55 Year
  Sex: Female

DRUGS (9)
  1. ALENDRONIC ACID [Suspect]
     Indication: PROPHYLAXIS
     Dosage: 70MG, QW
     Route: 048
     Dates: start: 200911, end: 20130516
  2. PROGRAF [Concomitant]
  3. FUROSEMIDE [Concomitant]
  4. AMITRIPTYLINE [Concomitant]
  5. ALLOPURINOL [Concomitant]
  6. PREDNISOLONE [Concomitant]
  7. CANDESARTAN [Concomitant]
  8. ASPIRIN [Concomitant]
  9. CEFALEXIN [Concomitant]

REACTIONS (3)
  - Weight bearing difficulty [Unknown]
  - Atypical femur fracture [Recovering/Resolving]
  - Pain in extremity [Unknown]
